FAERS Safety Report 15487708 (Version 1)
Quarter: 2018Q4

REPORT INFORMATION
  Report Type: Spontaneous
  Country: US (occurrence: US)
  Receive Date: 20181003
  Receipt Date: 20181003
  Transmission Date: 20190205
  Serious: No
  Sender: FDA-Public Use
  Company Number: None

PATIENT
  Age: 70 Year
  Sex: Male
  Weight: 84 kg

DRUGS (1)
  1. PIMAVANSERIN [Suspect]
     Active Substance: PIMAVANSERIN
     Indication: PARKINSON^S DISEASE PSYCHOSIS
     Dates: start: 20180621, end: 20180621

REACTIONS (5)
  - Muscle rigidity [None]
  - Confusional state [None]
  - Delirium [None]
  - Gait disturbance [None]
  - Drooling [None]

NARRATIVE: CASE EVENT DATE: 20180621
